FAERS Safety Report 9288679 (Version 3)
Quarter: 2014Q1

REPORT INFORMATION
  Report Type: Report from Study
  Country: JP (occurrence: JP)
  Receive Date: 20130514
  Receipt Date: 20140312
  Transmission Date: 20141002
  Serious: Yes (Other)
  Sender: FDA-Public Use
  Company Number: JP-JNJFOC-20130506031

PATIENT
  Age: 31 Year
  Sex: Female
  Weight: 48 kg

DRUGS (18)
  1. SIMPONI [Suspect]
     Indication: RHEUMATOID ARTHRITIS
     Route: 058
     Dates: start: 20120903, end: 20120903
  2. SIMPONI [Suspect]
     Indication: RHEUMATOID ARTHRITIS
     Route: 058
     Dates: start: 20120806, end: 20120806
  3. METHOTREXATE [Concomitant]
     Indication: RHEUMATOID ARTHRITIS
  4. PREDONINE [Concomitant]
     Indication: RHEUMATOID ARTHRITIS
     Route: 048
     Dates: end: 20120610
  5. PREDONINE [Concomitant]
     Indication: RHEUMATOID ARTHRITIS
     Route: 048
     Dates: start: 20120517, end: 20130116
  6. PREDOHAN [Concomitant]
     Indication: RHEUMATOID ARTHRITIS
     Route: 048
     Dates: start: 20120611
  7. PREDNISOLONE [Concomitant]
     Indication: RHEUMATOID ARTHRITIS
     Route: 048
     Dates: start: 20120611
  8. KENTAN [Concomitant]
     Indication: RHEUMATOID ARTHRITIS
     Route: 048
  9. KETOPROFEN [Concomitant]
     Indication: RHEUMATOID ARTHRITIS
  10. BAYASPIRIN [Concomitant]
     Route: 048
  11. TAKEPRON [Concomitant]
     Indication: PROPHYLAXIS
     Route: 048
  12. ANPLAG [Concomitant]
     Indication: ARTERIAL OCCLUSIVE DISEASE
     Route: 048
  13. TEPRENONE [Concomitant]
     Indication: PROPHYLAXIS
     Route: 048
  14. PLETAAL [Concomitant]
     Indication: ARTERIAL OCCLUSIVE DISEASE
     Route: 048
  15. FOLIAMIN [Concomitant]
     Indication: PROPHYLAXIS
     Route: 048
  16. MOHRUS TAPE [Concomitant]
     Indication: PROPHYLAXIS
     Route: 062
     Dates: start: 20120326
  17. SULFUR [Concomitant]
     Route: 062
  18. CAMPHOR [Concomitant]
     Indication: ACNE
     Route: 061

REACTIONS (1)
  - Dermatitis allergic [Recovered/Resolved]
